FAERS Safety Report 17718631 (Version 5)
Quarter: 2020Q3

REPORT INFORMATION
  Report Type: Report from Study
  Country: US (occurrence: US)
  Receive Date: 20200428
  Receipt Date: 20200721
  Transmission Date: 20201102
  Serious: No
  Sender: FDA-Public Use
  Company Number: NVSC2020US112706

PATIENT
  Sex: Female

DRUGS (3)
  1. COSENTYX [Suspect]
     Active Substance: SECUKINUMAB
     Dosage: ONCE WEEKLY FOR 5 WEEKS, MONTHLY THEN
     Route: 058
  2. COSENTYX [Suspect]
     Active Substance: SECUKINUMAB
     Indication: PSORIASIS
     Dosage: 300 MG(ONCE WEEKLY FOR EVERY 5 WEEKS)
     Route: 058
  3. COSENTYX [Suspect]
     Active Substance: SECUKINUMAB
     Indication: PSORIASIS
     Dosage: 300 MG, Q4W(ONCE EVERY 4 WEEKS)
     Route: 058

REACTIONS (3)
  - Sinus disorder [Unknown]
  - Pruritus [Unknown]
  - Fatigue [Unknown]
